FAERS Safety Report 13915889 (Version 2)
Quarter: 2017Q3

REPORT INFORMATION
  Report Type: Report from Study
  Country: US (occurrence: US)
  Receive Date: 20170829
  Receipt Date: 20170921
  Transmission Date: 20171127
  Serious: Yes (Other)
  Sender: FDA-Public Use
  Company Number: US-ROCHE-1985159

PATIENT
  Age: 39 Year
  Sex: Female
  Weight: 37.23 kg

DRUGS (10)
  1. MONTELUKAST [Concomitant]
     Active Substance: MONTELUKAST SODIUM
     Indication: URTICARIA
     Route: 048
     Dates: start: 20170530
  2. XOLAIR [Suspect]
     Active Substance: OMALIZUMAB
     Indication: URTICARIA
     Route: 058
     Dates: start: 20161207, end: 20170622
  3. FEXOFENADINE [Concomitant]
     Active Substance: FEXOFENADINE\FEXOFENADINE HYDROCHLORIDE
     Indication: URTICARIA
     Route: 048
     Dates: start: 20160711
  4. ZANTAC [Concomitant]
     Active Substance: RANITIDINE HYDROCHLORIDE
     Indication: URTICARIA
     Route: 048
     Dates: start: 20160711
  5. ACYCLOVIR. [Concomitant]
     Active Substance: ACYCLOVIR
     Indication: HERPES ZOSTER
     Dosage: PRN
     Route: 048
     Dates: start: 20170731
  6. HYDROCORTISONE. [Concomitant]
     Active Substance: HYDROCORTISONE
     Dosage: PRN
     Route: 048
     Dates: start: 20161213
  7. HYDROXYZINE [Concomitant]
     Active Substance: HYDROXYZINE HYDROCHLORIDE
     Indication: URTICARIA
     Dosage: BEDTIME
     Route: 048
     Dates: start: 20160711
  8. CROMOLYN [Concomitant]
     Active Substance: CROMOLYN
     Indication: GASTROINTESTINAL PAIN
     Dosage: 2-4 TIMS DAILY
     Route: 048
     Dates: start: 20161004
  9. KETOTIFEN [Concomitant]
     Active Substance: KETOTIFEN
     Dosage: DOSE: 1-3 MG
     Route: 048
     Dates: start: 20161004
  10. LORAZEPAM. [Concomitant]
     Active Substance: LORAZEPAM
     Indication: ANXIETY
     Dosage: DOSE: 2 MG/ML
     Route: 048
     Dates: start: 20170228

REACTIONS (5)
  - Urticaria [Unknown]
  - Pharyngeal disorder [Unknown]
  - Oropharyngeal pain [Recovering/Resolving]
  - Oral mucosal blistering [Recovering/Resolving]
  - Flushing [Unknown]

NARRATIVE: CASE EVENT DATE: 20170622
